FAERS Safety Report 5301102-8 (Version None)
Quarter: 2007Q2

REPORT INFORMATION
  Report Type: 
  Country: None (occurrence: None)
  Receive Date: 20070418
  Receipt Date: 20070417
  Transmission Date: 20071010
  Serious: Yes (Hospitalization)
  Sender: FDA-Public Use
  Company Number: US-GENENTECH-237527

PATIENT
  Age: 7 Year

DRUGS (2)
  1. XOLAIR [Suspect]
     Indication: DRUG USE FOR UNKNOWN INDICATION
  2. STEROID (NAME UNKNOWN) [Concomitant]
     Indication: ASTHMA

REACTIONS (1)
  - URTICARIA [None]
